FAERS Safety Report 17473791 (Version 3)
Quarter: 2020Q1

REPORT INFORMATION
  Report Type: Report from Study
  Country: US (occurrence: US)
  Receive Date: 20200228
  Receipt Date: 20200305
  Transmission Date: 20200409
  Serious: Yes (Other)
  Sender: FDA-Public Use
  Company Number: NVSC2019US087039

PATIENT
  Age: 2 Year
  Sex: Male
  Weight: 7 kg

DRUGS (7)
  1. ALBUTEROL. [Concomitant]
     Active Substance: ALBUTEROL
     Dosage: 3 ML
     Route: 065
     Dates: start: 20190315
  2. ZOLGENSMA [Suspect]
     Active Substance: ONASEMNOGENE ABEPARVOVEC-XIOI
     Indication: SPINAL MUSCULAR ATROPHY
     Dosage: 1.1 X 10^14 VG/KG
     Route: 042
     Dates: start: 20190724
  3. PREDNISOLONE ACETATE. [Concomitant]
     Active Substance: PREDNISOLONE ACETATE
     Indication: PROPHYLAXIS
     Dosage: 1-2 MG/KG
     Route: 065
     Dates: start: 20190723
  4. ALBUTEROL. [Concomitant]
     Active Substance: ALBUTEROL
     Indication: LUNG DISORDER
     Dosage: 2.5 MG/3ML QID,PRN
     Route: 065
     Dates: start: 20181002
  5. ALBUTEROL. [Concomitant]
     Active Substance: ALBUTEROL
     Dosage: UNK
     Route: 065
     Dates: start: 20190109
  6. PREDNISOLONE ACETATE. [Concomitant]
     Active Substance: PREDNISOLONE ACETATE
     Dosage: 2 MG/KG, QD
     Route: 065
     Dates: end: 20200118
  7. MR LUX [Concomitant]
     Indication: PRODUCT USED FOR UNKNOWN INDICATION
     Dosage: 8.5 G
     Route: 065
     Dates: start: 20181110

REACTIONS (3)
  - Aspartate aminotransferase increased [Recovered/Resolved]
  - Gamma-glutamyltransferase increased [Recovered/Resolved]
  - Alanine aminotransferase increased [Recovered/Resolved]

NARRATIVE: CASE EVENT DATE: 20190913
